FAERS Safety Report 9759023 (Version 1)
Quarter: 2013Q4

REPORT INFORMATION
  Report Type: Spontaneous
  Country: US (occurrence: None)
  Receive Date: 20131216
  Receipt Date: 20131216
  Transmission Date: 20140711
  Serious: Yes (Hospitalization, Other)
  Sender: FDA-Public Use
  Company Number: 163-21880-12021841(0)

PATIENT
  Age: 69 Year
  Sex: Female

DRUGS (1)
  1. REVLIMID [Suspect]
     Indication: PLASMA CELL MYELOMA
     Dosage: 25 MG, DAILY X 21 DAYS, PO?15 MG, DAILY X 21 DAYS, PO? ? ?

REACTIONS (6)
  - Full blood count decreased [None]
  - Dyspnoea [None]
  - Tremor [None]
  - Gait disturbance [None]
  - Dry mouth [None]
  - Gout [None]
